FAERS Safety Report 10378652 (Version 4)
Quarter: 2014Q3

REPORT INFORMATION
  Report Type: Spontaneous
  Country: US (occurrence: US)
  Receive Date: 20140812
  Receipt Date: 20140909
  Transmission Date: 20150326
  Serious: Yes (Other)
  Sender: FDA-Public Use
  Company Number: US-BAYER-2014-111603

PATIENT
  Age: 30 Year
  Sex: Female

DRUGS (1)
  1. MIRENA [Suspect]
     Active Substance: LEVONORGESTREL
     Indication: CONTRACEPTION
     Dosage: 20 MCG/24HR, CONT
     Route: 015
     Dates: start: 201309, end: 20140729

REACTIONS (10)
  - Complication of device removal [Not Recovered/Not Resolved]
  - Polymenorrhoea [Not Recovered/Not Resolved]
  - Device difficult to use [None]
  - Alopecia [Not Recovered/Not Resolved]
  - Rash [Not Recovered/Not Resolved]
  - Embedded device [Not Recovered/Not Resolved]
  - Device breakage [Not Recovered/Not Resolved]
  - Genital haemorrhage [None]
  - Procedural pain [None]
  - Amenorrhoea [Recovered/Resolved]

NARRATIVE: CASE EVENT DATE: 201309
